FAERS Safety Report 20913593 (Version 1)
Quarter: 2022Q2

REPORT INFORMATION
  Report Type: Report from Study
  Country: US (occurrence: US)
  Receive Date: 20220604
  Receipt Date: 20220604
  Transmission Date: 20220721
  Serious: Yes (Other)
  Sender: FDA-Public Use
  Company Number: US-BRISTOL-MYERS SQUIBB COMPANY-2022-018891

PATIENT
  Age: 83 Year
  Sex: Male
  Weight: 70.6 kg

DRUGS (14)
  1. REVLIMID [Suspect]
     Active Substance: LENALIDOMIDE
     Indication: Plasma cell myeloma
     Route: 048
     Dates: start: 20220314
  2. REVLIMID [Suspect]
     Active Substance: LENALIDOMIDE
     Indication: Carcinoid syndrome
  3. REVLIMID [Suspect]
     Active Substance: LENALIDOMIDE
     Indication: Abdominal mass
  4. ASPIRIN [Concomitant]
     Active Substance: ASPIRIN
  5. IMODIUM [Concomitant]
     Active Substance: LOPERAMIDE HYDROCHLORIDE
  6. POTASSIUM CHLORIDE [Concomitant]
     Active Substance: POTASSIUM CHLORIDE
  7. VITAMIN B12 [Concomitant]
     Active Substance: CYANOCOBALAMIN
  8. MINERALS\VITAMINS [Concomitant]
     Active Substance: MINERALS\VITAMINS
  9. DEXAMETHASONE [Concomitant]
     Active Substance: DEXAMETHASONE
  10. BENAZEPRIL [Concomitant]
     Active Substance: BENAZEPRIL HYDROCHLORIDE
  11. AMLODIPINE BESYLATE [Concomitant]
     Active Substance: AMLODIPINE BESYLATE
  12. VITAMIN D2 [Concomitant]
     Active Substance: ERGOCALCIFEROL
  13. VELCADE [Concomitant]
     Active Substance: BORTEZOMIB
  14. Vital high protein [Concomitant]

REACTIONS (8)
  - Memory impairment [Unknown]
  - Mental disorder [Unknown]
  - Diarrhoea [Not Recovered/Not Resolved]
  - Drug hypersensitivity [Unknown]
  - Unresponsive to stimuli [Unknown]
  - Incoherent [Unknown]
  - Dizziness [Unknown]
  - Ageusia [Unknown]
